FAERS Safety Report 17361302 (Version 1)
Quarter: 2020Q1

REPORT INFORMATION
  Report Type: Spontaneous
  Country: TR (occurrence: TR)
  Receive Date: 20200203
  Receipt Date: 20200203
  Transmission Date: 20200409
  Serious: Yes (Other)
  Sender: FDA-Public Use
  Company Number: TR-BIOVITRUM-2020TR0566

PATIENT
  Age: 58 Year
  Sex: Male

DRUGS (1)
  1. ANAKINRA [Suspect]
     Active Substance: ANAKINRA
     Indication: AMYLOIDOSIS

REACTIONS (2)
  - Off label use [Unknown]
  - Leukopenia [Unknown]
